FAERS Safety Report 23809093 (Version 1)
Quarter: 2024Q2

REPORT INFORMATION
  Report Type: Spontaneous
  Country: US (occurrence: None)
  Receive Date: 20240501
  Receipt Date: 20240501
  Transmission Date: 20240716
  Serious: Yes (Hospitalization)
  Sender: FDA-Public Use
  Company Number: None

PATIENT
  Age: 63 Year
  Sex: Male

DRUGS (1)
  1. ABIRATERONE [Suspect]
     Active Substance: ABIRATERONE
     Indication: Prostate cancer
     Dosage: FREQUENCY : DAILY;?
     Route: 048

REACTIONS (6)
  - Peripheral nerve lesion [None]
  - Fall [None]
  - Foot fracture [None]
  - Toe amputation [None]
  - Gait disturbance [None]
  - Walking aid user [None]

NARRATIVE: CASE EVENT DATE: 20240101
